FAERS Safety Report 7491467-3 (Version None)
Quarter: 2011Q2

REPORT INFORMATION
  Report Type: 
  Country: None (occurrence: None)
  Receive Date: 20110519
  Receipt Date: 20110510
  Transmission Date: 20111010
  Serious: Yes (Hospitalization)
  Sender: FDA-Public Use
  Company Number: PHHY2011DE37195

PATIENT
  Sex: Female

DRUGS (1)
  1. GILENYA [Suspect]
     Indication: MULTIPLE SCLEROSIS
     Dosage: 0.5 MG, QD
     Route: 048
     Dates: start: 20110419, end: 20110427

REACTIONS (5)
  - TACHYCARDIA [None]
  - NAUSEA [None]
  - BRADYCARDIA [None]
  - DIZZINESS [None]
  - MUSCULOSKELETAL STIFFNESS [None]
